FAERS Safety Report 12052930 (Version 1)
Quarter: 2016Q1

REPORT INFORMATION
  Report Type: Report from Study
  Country: BR (occurrence: BR)
  Receive Date: 20160209
  Receipt Date: 20160209
  Transmission Date: 20160526
  Serious: Yes (Hospitalization)
  Sender: FDA-Public Use
  Company Number: PHHY2016BR016750

PATIENT
  Sex: Female
  Weight: 67 kg

DRUGS (3)
  1. EXJADE [Suspect]
     Active Substance: DEFERASIROX
     Indication: HEREDITARY STOMATOCYTOSIS
     Dosage: UNK
     Route: 048
     Dates: start: 201501, end: 201503
  2. FOLIC ACID. [Concomitant]
     Active Substance: FOLIC ACID
     Indication: IRON OVERLOAD
     Dosage: UNK UNK, QD
     Route: 065
  3. TRAMAL [Suspect]
     Active Substance: TRAMADOL
     Indication: PAIN IN EXTREMITY
     Dosage: 2 DF, UNK
     Route: 048

REACTIONS (5)
  - Kidney infection [Recovering/Resolving]
  - Somnolence [Unknown]
  - Oedema peripheral [Unknown]
  - Pain in extremity [Unknown]
  - Hypoaesthesia [Unknown]

NARRATIVE: CASE EVENT DATE: 2015
